FAERS Safety Report 21276488 (Version 1)
Quarter: 2022Q3

REPORT INFORMATION
  Report Type: Spontaneous
  Country: US (occurrence: US)
  Receive Date: 20220831
  Receipt Date: 20220831
  Transmission Date: 20221026
  Serious: No
  Sender: FDA-Public Use
  Company Number: US-ABBVIE-22K-163-4413398-00

PATIENT
  Sex: Female
  Weight: 113.50 kg

DRUGS (3)
  1. HUMIRA [Suspect]
     Active Substance: ADALIMUMAB
     Indication: Rheumatoid arthritis
     Route: 058
     Dates: start: 20211020, end: 20220420
  2. MODERNA COVID-19 VACCINE [Suspect]
     Active Substance: ELASOMERAN
     Indication: COVID-19 immunisation
     Route: 030
     Dates: start: 202103, end: 202103
  3. MODERNA COVID-19 VACCINE [Suspect]
     Active Substance: ELASOMERAN
     Route: 030
     Dates: start: 202104, end: 202104

REACTIONS (9)
  - Executive dysfunction [Recovering/Resolving]
  - General symptom [Unknown]
  - Disturbance in attention [Unknown]
  - Mood swings [Unknown]
  - Inflammation [Unknown]
  - Anger [Unknown]
  - Anxiety [Unknown]
  - Pain [Unknown]
  - Tremor [Unknown]
